FAERS Safety Report 9975897 (Version 1)
Quarter: 2014Q1

REPORT INFORMATION
  Report Type: Spontaneous
  Country: US (occurrence: US)
  Receive Date: 20140306
  Receipt Date: 20140306
  Transmission Date: 20141002
  Serious: No
  Sender: FDA-Public Use
  Company Number: US-PFIZER INC-2014060563

PATIENT
  Age: 64 Year
  Sex: Male

DRUGS (2)
  1. CELEBREX [Suspect]
     Dosage: UNK
  2. DEMEROL [Suspect]
     Dosage: UNK

REACTIONS (1)
  - Drug hypersensitivity [Unknown]
